FAERS Safety Report 12572800 (Version 2)
Quarter: 2016Q4

REPORT INFORMATION
  Report Type: Spontaneous
  Country: US (occurrence: US)
  Receive Date: 20160720
  Receipt Date: 20161012
  Transmission Date: 20170207
  Serious: No
  Sender: FDA-Public Use
  Company Number: US-TEVA-669550USA

PATIENT
  Age: 49 Year
  Sex: Female

DRUGS (20)
  1. PROPRANOLOL [Concomitant]
     Active Substance: PROPRANOLOL\PROPRANOLOL HYDROCHLORIDE
  2. RED YEAST RICE [Concomitant]
     Active Substance: DIETARY SUPPLEMENT
  3. LANSOPRAZOLE. [Concomitant]
     Active Substance: LANSOPRAZOLE
  4. VITAMIN B STRESS COMPLEX VITAMIN [Concomitant]
  5. TRAMADOL. [Concomitant]
     Active Substance: TRAMADOL
  6. GABAPENTIN. [Concomitant]
     Active Substance: GABAPENTIN
  7. FENOFIBRATE. [Concomitant]
     Active Substance: FENOFIBRATE
  8. COMBIVENT RESPIMAT [Concomitant]
     Active Substance: ALBUTEROL SULFATE\IPRATROPIUM BROMIDE
  9. AMITRIPTYLINE [Concomitant]
     Active Substance: AMITRIPTYLINE
  10. METFORMIN [Concomitant]
     Active Substance: METFORMIN HYDROCHLORIDE
  11. SYMBICORT [Concomitant]
     Active Substance: BUDESONIDE\FORMOTEROL FUMARATE DIHYDRATE
  12. RIZATRIPTAN. [Concomitant]
     Active Substance: RIZATRIPTAN
  13. CYMBALTA [Concomitant]
     Active Substance: DULOXETINE HYDROCHLORIDE
  14. KRILL OIL [Concomitant]
     Active Substance: DIETARY SUPPLEMENT
  15. MULTIVITAMIN [Concomitant]
     Active Substance: VITAMINS
  16. ZOFRAN [Concomitant]
     Active Substance: ONDANSETRON HYDROCHLORIDE
  17. HCTZ [Concomitant]
     Active Substance: HYDROCHLOROTHIAZIDE
  18. CALCIUM-MAGNESIUM-ZINC TAB [Concomitant]
  19. TURMERIC [Concomitant]
     Active Substance: TURMERIC
  20. ZECUITY [Suspect]
     Active Substance: SUMATRIPTAN SUCCINATE
     Indication: HEADACHE
     Route: 062
     Dates: start: 20160613

REACTIONS (9)
  - Product adhesion issue [Unknown]
  - Application site erythema [Recovered/Resolved]
  - Application site pruritus [Recovered/Resolved]
  - Application site discolouration [Recovered/Resolved]
  - Product leakage [Recovered/Resolved]
  - Application site warmth [Recovered/Resolved]
  - Application site irritation [Recovered/Resolved]
  - Application site papules [Recovered/Resolved]
  - Circumstance or information capable of leading to medication error [Unknown]

NARRATIVE: CASE EVENT DATE: 20160613
